FAERS Safety Report 9071436 (Version 4)
Quarter: 2013Q1

REPORT INFORMATION
  Report Type: Report from Study
  Country: FR (occurrence: FR)
  Receive Date: 20130129
  Receipt Date: 20130318
  Transmission Date: 20140127
  Serious: Yes (Hospitalization, Other)
  Sender: FDA-Public Use
  Company Number: FR-BRISTOL-MYERS SQUIBB COMPANY-17312034

PATIENT
  Age: 75 Year
  Sex: Male

DRUGS (1)
  1. BELATACEPT [Suspect]
     Indication: RENAL TRANSPLANT
     Dosage: 1DF: 285 UNITS NOS
     Route: 042
     Dates: start: 20070622

REACTIONS (3)
  - Prostate cancer [Not Recovered/Not Resolved]
  - Anaemia [Recovered/Resolved]
  - Prostatitis [Recovered/Resolved]
